FAERS Safety Report 8783316 (Version 1)
Quarter: 2012Q4

REPORT INFORMATION
  Report Type: 
  Country: GB (occurrence: GB)
  Receive Date: 20120913
  Receipt Date: 20120913
  Transmission Date: 20130627
  Serious: Yes (Other)
  Sender: FDA-Public Use
  Company Number: GB-JNJFOC-20120902663

PATIENT
  Sex: Male

DRUGS (2)
  1. DAKTARIN [Suspect]
     Route: 061
  2. DAKTARIN [Suspect]
     Indication: PRODUCT USED FOR UNKNOWN INDICATION
     Route: 061

REACTIONS (1)
  - Thermal burn [Unknown]
